FAERS Safety Report 20197947 (Version 1)
Quarter: 2021Q4

REPORT INFORMATION
  Report Type: Spontaneous
  Country: US (occurrence: US)
  Receive Date: 20211217
  Receipt Date: 20211217
  Transmission Date: 20220303
  Serious: No
  Sender: FDA-Public Use
  Company Number: US-ALLERGAN-2050532US

PATIENT
  Age: 61 Year
  Sex: Female
  Weight: 86.18 kg

DRUGS (2)
  1. PREDNISOLONE ACETATE [Suspect]
     Active Substance: PREDNISOLONE ACETATE
     Indication: Keratitis
     Dosage: UNK, 1 DROP TO RIGHT EYE 2 HOURS FOR 24 HOURS, THEN TAPER TO
     Route: 047
  2. METOPROLOL [Concomitant]
     Active Substance: METOPROLOL
     Indication: Cardiac disorder

REACTIONS (3)
  - Eye pain [Unknown]
  - Product container seal issue [Unknown]
  - Therapeutic response decreased [Unknown]

NARRATIVE: CASE EVENT DATE: 20201201
